FAERS Safety Report 9232869 (Version 1)
Quarter: 2013Q2

REPORT INFORMATION
  Report Type: Spontaneous
  Country: US (occurrence: None)
  Receive Date: 20130415
  Receipt Date: 20130415
  Transmission Date: 20140414
  Serious: Yes (Hospitalization)
  Sender: FDA-Public Use
  Company Number: None

PATIENT
  Age: 77 Year
  Sex: Male
  Weight: 82.3 kg

DRUGS (2)
  1. BORTEZOMIB [Suspect]
     Indication: DIFFUSE LARGE B-CELL LYMPHOMA
     Dosage: 3.0 MG DAY 1, 8, 15, 22 IV
     Route: 042
     Dates: start: 20120619, end: 20120703
  2. TEMSIROLIMUS [Suspect]
     Indication: DIFFUSE LARGE B-CELL LYMPHOMA
     Dosage: 25 MG DAY 1,8,15,22, IV
     Route: 042
     Dates: start: 20120619, end: 20120703

REACTIONS (9)
  - Syncope [None]
  - Disease recurrence [None]
  - Fall [None]
  - Radius fracture [None]
  - Atrial flutter [None]
  - Pleural effusion [None]
  - Pericardial effusion [None]
  - Cardiotoxicity [None]
  - Cardiac failure congestive [None]
